FAERS Safety Report 9981306 (Version 1)
Quarter: 2014Q1

REPORT INFORMATION
  Report Type: Spontaneous
  Country: US (occurrence: None)
  Receive Date: 20140305
  Receipt Date: 20140305
  Transmission Date: 20141002
  Serious: Yes (Other)
  Sender: FDA-Public Use
  Company Number: US-INDICUS PHARMA-000241

PATIENT
  Age: 74 Year
  Sex: Female

DRUGS (1)
  1. LETROZOLE (LETROZOLE) [Suspect]
     Indication: BREAST CANCER STAGE II

REACTIONS (3)
  - Recall phenomenon [None]
  - Erythema [None]
  - Pruritus [None]
